FAERS Safety Report 5923612-2 (Version None)
Quarter: 2008Q4

REPORT INFORMATION
  Report Type: 
  Country: None (occurrence: None)
  Receive Date: 20081020
  Receipt Date: 20081008
  Transmission Date: 20090506
  Serious: Yes (Other)
  Sender: FDA-Public Use
  Company Number: PHHO2008US12103

PATIENT
  Sex: Female
  Weight: 70 kg

DRUGS (3)
  1. ZOLEDRONATE T29581+SOLINF [Suspect]
     Indication: BREAST CANCER
     Dosage: 4MG
     Route: 042
     Dates: start: 20070206, end: 20080328
  2. CYTARABINE [Suspect]
     Dosage: UNK
     Dates: start: 20070206
  3. TAXOL [Suspect]
     Indication: BREAST CANCER
     Dosage: UNK
     Dates: start: 20070206

REACTIONS (10)
  - GINGIVAL ABSCESS [None]
  - HYPOAESTHESIA FACIAL [None]
  - INSOMNIA [None]
  - LOOSE TOOTH [None]
  - NEURALGIA [None]
  - ORAL TORUS [None]
  - OSTEONECROSIS [None]
  - PAIN IN JAW [None]
  - TENDERNESS [None]
  - TOOTHACHE [None]
